FAERS Safety Report 6029055-8 (Version None)
Quarter: 2009Q1

REPORT INFORMATION
  Report Type: 
  Country: None (occurrence: None)
  Receive Date: 20090106
  Receipt Date: 20081229
  Transmission Date: 20090719
  Serious: Yes (Death, Hospitalization, Other)
  Sender: FDA-Public Use
  Company Number: FR-ELI_LILLY_AND_COMPANY-FR200812005881

PATIENT
  Sex: Female

DRUGS (5)
  1. ZYPREXA [Suspect]
     Dosage: 20 MG, DAILY (1/D)
     Route: 048
     Dates: end: 20081116
  2. TERCIAN [Concomitant]
     Dosage: 25 MG, 2/D
     Route: 048
     Dates: end: 20081103
  3. TERCIAN [Concomitant]
     Dosage: 25 MG, 4/D
     Route: 048
     Dates: start: 20081104, end: 20081116
  4. DEPAKOTE [Concomitant]
     Dosage: 500 MG, 3/D
     Route: 048
     Dates: end: 20081116
  5. XANAX [Concomitant]
     Dosage: 2 MG, DAILY (1/D)
     Route: 048
     Dates: end: 20081116

REACTIONS (3)
  - BRAIN DEATH [None]
  - CARDIAC ARREST [None]
  - ELECTROCARDIOGRAM QT PROLONGED [None]
